FAERS Safety Report 16737858 (Version 3)
Quarter: 2019Q3

REPORT INFORMATION
  Report Type: Report from Study
  Country: None (occurrence: PE)
  Receive Date: 20190824
  Receipt Date: 20190923
  Transmission Date: 20191005
  Serious: Yes (Hospitalization, Other)
  Sender: FDA-Public Use
  Company Number: PE-ABBVIE-19K-127-2900058-00

PATIENT
  Age: 49 Year
  Sex: Female
  Weight: 64 kg

DRUGS (1)
  1. HUMIRA [Suspect]
     Active Substance: ADALIMUMAB
     Indication: RHEUMATOID ARTHRITIS
     Route: 058
     Dates: start: 20170715

REACTIONS (8)
  - Cutaneous lupus erythematosus [Unknown]
  - Pruritus generalised [Recovering/Resolving]
  - Immune system disorder [Recovering/Resolving]
  - Dry skin [Recovering/Resolving]
  - Skin hypertrophy [Recovering/Resolving]
  - Skin discolouration [Recovering/Resolving]
  - Rash macular [Recovering/Resolving]
  - Gait disturbance [Recovering/Resolving]

NARRATIVE: CASE EVENT DATE: 201907
